FAERS Safety Report 9586223 (Version 1)
Quarter: 2013Q4

REPORT INFORMATION
  Report Type: Spontaneous
  Country: US (occurrence: None)
  Receive Date: 20131002
  Receipt Date: 20131002
  Transmission Date: 20140711
  Serious: Yes (Other)
  Sender: FDA-Public Use
  Company Number: None

PATIENT
  Sex: 0

DRUGS (2)
  1. BENZONATATE [Suspect]
     Indication: NASOPHARYNGITIS
     Route: 048
     Dates: start: 20130928, end: 20130930
  2. BENZONATATE [Suspect]
     Indication: INFLUENZA
     Route: 048
     Dates: start: 20130928, end: 20130930

REACTIONS (4)
  - Cough [None]
  - Dyspnoea [None]
  - Dysphagia [None]
  - Atrial fibrillation [None]
